FAERS Safety Report 16319086 (Version 1)
Quarter: 2019Q2

REPORT INFORMATION
  Report Type: Spontaneous
  Country: US (occurrence: US)
  Receive Date: 20190515
  Receipt Date: 20190515
  Transmission Date: 20190711
  Serious: Yes (Hospitalization, Disabling, Other)
  Sender: FDA-Public Use
  Company Number: None

PATIENT
  Sex: Female
  Weight: 65.25 kg

DRUGS (1)
  1. NEXPLANON [Suspect]
     Active Substance: ETONOGESTREL
     Indication: CONTRACEPTION
     Dosage: ?          OTHER FREQUENCY:CONTINUOUS;?
     Route: 058
     Dates: end: 20190508

REACTIONS (15)
  - Depression [None]
  - Back pain [None]
  - Headache [None]
  - Anxiety [None]
  - Hypertension [None]
  - Fungal infection [None]
  - Pollakiuria [None]
  - Bacterial vaginosis [None]
  - Increased appetite [None]
  - Chest pain [None]
  - Urinary tract infection [None]
  - Vulvovaginal dryness [None]
  - Thirst [None]
  - Neck pain [None]
  - Pain [None]
